FAERS Safety Report 22796863 (Version 5)
Quarter: 2023Q4

REPORT INFORMATION
  Report Type: Report from Study
  Country: CA (occurrence: CA)
  Receive Date: 20230808
  Receipt Date: 20231212
  Transmission Date: 20240110
  Serious: Yes (Other)
  Sender: FDA-Public Use
  Company Number: CA-CELLTRION INC.-2023CA015649

PATIENT

DRUGS (5)
  1. BEVACIZUMAB [Suspect]
     Active Substance: BEVACIZUMAB
     Indication: Hereditary haemorrhagic telangiectasia
     Dosage: UNK
     Route: 042
  2. BEVACIZUMAB [Suspect]
     Active Substance: BEVACIZUMAB
     Dosage: 250 MILLIGRAM, 1 EVERY 2 WEEKS
     Route: 042
  3. BEVACIZUMAB [Suspect]
     Active Substance: BEVACIZUMAB
     Dosage: 250 MILLIGRAM, 1 EVERY 4 WEEKS
     Route: 042
  4. BEVACIZUMAB [Suspect]
     Active Substance: BEVACIZUMAB
     Dosage: 230 MG, 1 EVERY 4 WEEKS
     Route: 042
  5. FERRITIN [Suspect]
     Active Substance: FERRITIN
     Indication: Product used for unknown indication
     Route: 042

REACTIONS (19)
  - Balance disorder [Recovered/Resolved]
  - Blood pressure diastolic decreased [Recovered/Resolved]
  - Feeling cold [Recovered/Resolved]
  - Mobility decreased [Recovered/Resolved]
  - Skin ulcer [Recovered/Resolved]
  - Oral herpes [Recovered/Resolved]
  - Dyspnoea [Recovered/Resolved]
  - Epistaxis [Recovered/Resolved]
  - Chills [Recovered/Resolved]
  - Dizziness [Recovered/Resolved]
  - Fatigue [Recovered/Resolved]
  - Headache [Recovered/Resolved]
  - Haemoglobin decreased [Recovered/Resolved]
  - Infusion related reaction [Recovered/Resolved]
  - Nausea [Recovered/Resolved]
  - Oxygen saturation decreased [Recovered/Resolved]
  - Weight decreased [Recovered/Resolved]
  - Off label use [Recovered/Resolved]
  - Intentional product use issue [Unknown]
